FAERS Safety Report 20408153 (Version 2)
Quarter: 2022Q1

REPORT INFORMATION
  Report Type: Spontaneous
  Country: JP (occurrence: JP)
  Receive Date: 20220201
  Receipt Date: 20220208
  Transmission Date: 20220423
  Serious: No
  Sender: FDA-Public Use
  Company Number: JP-NOVOPROD-886156

PATIENT
  Age: 12 Year
  Sex: Female

DRUGS (1)
  1. NORDITROPIN [Suspect]
     Active Substance: SOMATROPIN
     Indication: Small for dates baby
     Dosage: UNK
     Route: 058

REACTIONS (2)
  - Autoimmune thyroiditis [Unknown]
  - Hypothyroidism [Unknown]
